FAERS Safety Report 17253640 (Version 3)
Quarter: 2020Q1

REPORT INFORMATION
  Report Type: Report from Study
  Country: US (occurrence: US)
  Receive Date: 20200109
  Receipt Date: 20200113
  Transmission Date: 20200409
  Serious: Yes (Hospitalization)
  Sender: FDA-Public Use
  Company Number: US-JNJFOC-20200107588

PATIENT
  Age: 18 Year
  Sex: Female
  Weight: 56.7 kg

DRUGS (21)
  1. VORICONAZOLE. [Concomitant]
     Active Substance: VORICONAZOLE
  2. METHOTREXATE. [Concomitant]
     Active Substance: METHOTREXATE
  3. RIFAXIMIN. [Concomitant]
     Active Substance: RIFAXIMIN
  4. INFLIXIMAB, RECOMBINANT [Suspect]
     Active Substance: INFLIXIMAB
     Indication: INFLAMMATORY BOWEL DISEASE
     Route: 042
     Dates: start: 20170424, end: 201903
  5. LANSOPRAZOLE. [Concomitant]
     Active Substance: LANSOPRAZOLE
  6. VERAPAMIL [Concomitant]
     Active Substance: VERAPAMIL HYDROCHLORIDE
  7. ZOFRAN [Concomitant]
     Active Substance: ONDANSETRON HYDROCHLORIDE
  8. MELATONIN [Concomitant]
     Active Substance: MELATONIN
  9. HUMIRA [Concomitant]
     Active Substance: ADALIMUMAB
  10. DULERA [Concomitant]
     Active Substance: FORMOTEROL FUMARATE DIHYDRATE\MOMETASONE FUROATE
  11. DESMOPRESSIN [Concomitant]
     Active Substance: DESMOPRESSIN
  12. DICYCLOMINE                        /00068601/ [Concomitant]
     Active Substance: DICYCLOMINE HYDROCHLORIDE
  13. SUCRALFATE. [Concomitant]
     Active Substance: SUCRALFATE
  14. AMITRIPTYLINE [Concomitant]
     Active Substance: AMITRIPTYLINE
  15. FOLIC ACID. [Concomitant]
     Active Substance: FOLIC ACID
  16. MAXALT [Concomitant]
     Active Substance: RIZATRIPTAN BENZOATE
  17. MIDODRINE [Concomitant]
     Active Substance: MIDODRINE
  18. MONTELUKAST [Concomitant]
     Active Substance: MONTELUKAST SODIUM
  19. SERTRALINE [Concomitant]
     Active Substance: SERTRALINE HYDROCHLORIDE
  20. CELECOXIB. [Concomitant]
     Active Substance: CELECOXIB
  21. ZYRTEC [Concomitant]
     Active Substance: CETIRIZINE HYDROCHLORIDE

REACTIONS (1)
  - Pneumothorax [Recovered/Resolved]

NARRATIVE: CASE EVENT DATE: 20191224
